FAERS Safety Report 10400257 (Version 2)
Quarter: 2014Q3

REPORT INFORMATION
  Report Type: Spontaneous
  Country: US (occurrence: US)
  Receive Date: 20140821
  Receipt Date: 20140821
  Transmission Date: 20150326
  Serious: Yes (Hospitalization, Other)
  Sender: FDA-Public Use
  Company Number: US-009507513-2010SP044543

PATIENT
  Sex: Female
  Weight: 65.77 kg

DRUGS (5)
  1. MK-8600 [Concomitant]
     Dosage: UNK UNK, QOD
  2. PROZAC [Concomitant]
     Active Substance: FLUOXETINE HYDROCHLORIDE
     Dosage: 20 MG, QD
  3. NUVARING [Suspect]
     Active Substance: ETHINYL ESTRADIOL\ETONOGESTREL
     Indication: CONTRACEPTION
     Route: 067
     Dates: start: 20080516, end: 200808
  4. SYNTHROID [Concomitant]
     Active Substance: LEVOTHYROXINE SODIUM
     Dosage: 200 ?G, QD
  5. ROCALTROL [Concomitant]
     Active Substance: CALCITRIOL
     Dosage: UNK UNK, QOD

REACTIONS (6)
  - Herpes simplex [Unknown]
  - Pulmonary embolism [Unknown]
  - Pulmonary infarction [Unknown]
  - Hypertension [Unknown]
  - Inappropriate schedule of drug administration [Unknown]
  - Dermatitis contact [Unknown]

NARRATIVE: CASE EVENT DATE: 20080516
